FAERS Safety Report 9104172 (Version 1)
Quarter: 2013Q1

REPORT INFORMATION
  Report Type: Spontaneous
  Country: GB (occurrence: GB)
  Receive Date: 20130219
  Receipt Date: 20130219
  Transmission Date: 20140127
  Serious: Yes (Other)
  Sender: FDA-Public Use
  Company Number: GB-PFIZER INC-2013058430

PATIENT
  Age: 69 Year
  Sex: Female

DRUGS (1)
  1. PROVERA [Suspect]
     Dosage: 400 MG, UNK

REACTIONS (1)
  - Aphagia [Unknown]
